FAERS Safety Report 8935751 (Version 2)
Quarter: 2012Q4

REPORT INFORMATION
  Report Type: 
  Country: ES (occurrence: ES)
  Receive Date: 20121130
  Receipt Date: 20121220
  Transmission Date: 20130627
  Serious: Yes (Hospitalization, Other)
  Sender: FDA-Public Use
  Company Number: ES-ELI_LILLY_AND_COMPANY-ES201211006125

PATIENT
  Age: 66 Year
  Sex: Female

DRUGS (2)
  1. FORSTEO [Suspect]
     Dosage: UNK
     Dates: start: 20120815
  2. FORSTEO [Suspect]
     Dosage: UNK
     Dates: start: 20121212

REACTIONS (4)
  - Gastrointestinal disorder [Unknown]
  - Localised infection [Unknown]
  - Vomiting [Unknown]
  - Nausea [Unknown]
